FAERS Safety Report 13841107 (Version 1)
Quarter: 2017Q3

REPORT INFORMATION
  Report Type: Spontaneous
  Country: NO (occurrence: NO)
  Receive Date: 20170807
  Receipt Date: 20170807
  Transmission Date: 20171127
  Serious: Yes (Other)
  Sender: FDA-Public Use
  Company Number: NO-PFIZER INC-2017333744

PATIENT
  Age: 80 Year
  Sex: Female

DRUGS (6)
  1. NOBLIGAN [Suspect]
     Active Substance: TRAMADOL HYDROCHLORIDE
     Dosage: UNK
  2. EMCONCOR [Concomitant]
     Active Substance: BISOPROLOL FUMARATE
     Indication: BLOOD PRESSURE MEASUREMENT
     Dosage: UNK
  3. OXYCONTIN [Concomitant]
     Active Substance: OXYCODONE HYDROCHLORIDE
     Indication: PAIN
     Dosage: UNK
  4. CORTISON [Concomitant]
     Active Substance: CORTISONE ACETATE
     Indication: BLOOD PRESSURE MEASUREMENT
     Dosage: UNK
  5. SOBRIL [Concomitant]
     Active Substance: OXAZEPAM
     Dosage: UNK
  6. ZOLOFT [Suspect]
     Active Substance: SERTRALINE HYDROCHLORIDE
     Dosage: UNK

REACTIONS (29)
  - Wrist fracture [Unknown]
  - Pain in extremity [Unknown]
  - Restlessness [Unknown]
  - Drug dependence [Unknown]
  - Balance disorder [Unknown]
  - Palpitations [Unknown]
  - Cold sweat [Unknown]
  - Dyskinesia [Unknown]
  - Disease progression [Unknown]
  - Depression [Unknown]
  - Hot flush [Unknown]
  - Nervousness [Unknown]
  - Gastric disorder [Unknown]
  - Myalgia [Unknown]
  - Dizziness [Unknown]
  - Dyspnoea [Unknown]
  - Weight increased [Unknown]
  - Paraesthesia [Unknown]
  - Tinnitus [Unknown]
  - Back pain [Unknown]
  - Fluid retention [Unknown]
  - Tremor [Unknown]
  - Musculoskeletal stiffness [Unknown]
  - Pain [Unknown]
  - Lacrimation increased [Recovered/Resolved]
  - Arthralgia [Unknown]
  - Limb crushing injury [Unknown]
  - Dysstasia [Unknown]
  - Hypertension [Unknown]
